FAERS Safety Report 6638812-6 (Version None)
Quarter: 2010Q1

REPORT INFORMATION
  Report Type: 
  Country: None (occurrence: None)
  Receive Date: 20100317
  Receipt Date: 20100303
  Transmission Date: 20100710
  Serious: Yes (Hospitalization, Other)
  Sender: FDA-Public Use
  Company Number: PT-MYLANLABS-2010S1003533

PATIENT
  Age: 57 Year
  Sex: Female

DRUGS (4)
  1. BISOPROLOL [Suspect]
     Indication: VENTRICULAR EXTRASYSTOLES
     Route: 065
  2. BISOPROLOL [Interacting]
     Indication: BUNDLE BRANCH BLOCK LEFT
     Route: 065
  3. BISOPROLOL [Interacting]
     Indication: ATRIOVENTRICULAR BLOCK FIRST DEGREE
     Route: 065
  4. MEFLOQUINE HCL [Interacting]
     Indication: MALARIA PROPHYLAXIS
     Route: 048

REACTIONS (2)
  - ATRIOVENTRICULAR BLOCK SECOND DEGREE [None]
  - DRUG INTERACTION [None]
